FAERS Safety Report 6728127-X (Version None)
Quarter: 2010Q2

REPORT INFORMATION
  Report Type: 
  Country: None (occurrence: None)
  Receive Date: 20100517
  Receipt Date: 20100507
  Transmission Date: 20101027
  Serious: Yes (Death)
  Sender: FDA-Public Use
  Company Number: A0788079A

PATIENT
  Age: 71 Year
  Sex: Male
  Weight: 70.5 kg

DRUGS (1)
  1. AVANDIA [Suspect]
     Dosage: 4MG PER DAY
     Route: 048
     Dates: start: 20000101, end: 20070222

REACTIONS (4)
  - CARDIAC VALVE DISEASE [None]
  - DEATH [None]
  - INJURY [None]
  - TRANSIENT ISCHAEMIC ATTACK [None]
